FAERS Safety Report 7210321-5 (Version None)
Quarter: 2011Q1

REPORT INFORMATION
  Report Type: 
  Country: None (occurrence: None)
  Receive Date: 20110105
  Receipt Date: 20101228
  Transmission Date: 20110831
  Serious: Yes (Other)
  Sender: FDA-Public Use
  Company Number: US-PFIZER INC-2010180667

PATIENT
  Sex: Male
  Weight: 63.5 kg

DRUGS (2)
  1. PROTONIX [Suspect]
     Indication: GASTROOESOPHAGEAL REFLUX DISEASE
     Dosage: 140 MG, 1X/DAY
     Route: 048
  2. CITALOPRAM [Concomitant]
     Indication: DEPRESSION
     Dosage: UNK

REACTIONS (2)
  - COELIAC DISEASE [None]
  - OROPHARYNGEAL DISCOMFORT [None]
